FAERS Safety Report 8425745-8 (Version None)
Quarter: 2012Q2

REPORT INFORMATION
  Report Type: 
  Country: None (occurrence: None)
  Receive Date: 20120611
  Receipt Date: 20120608
  Transmission Date: 20120825
  Serious: Yes (Hospitalization)
  Sender: FDA-Public Use
  Company Number: PHHO2011NZ11333

PATIENT
  Sex: Male
  Weight: 76.5 kg

DRUGS (4)
  1. HUMALOG [Concomitant]
     Dosage: 20 UNITS TDS
     Route: 058
  2. METFORMIN HCL [Concomitant]
     Dosage: 750 MG, BID
     Route: 048
  3. ZORTRESS [Suspect]
     Indication: METASTATIC RENAL CELL CARCINOMA
     Dosage: 10 MG, QD
     Route: 048
     Dates: start: 20110602, end: 20110612
  4. CITALOPRAM [Concomitant]
     Indication: ANXIETY
     Dosage: 6 MG, DAILY
     Route: 048

REACTIONS (4)
  - LOWER RESPIRATORY TRACT INFECTION [None]
  - LOBAR PNEUMONIA [None]
  - PULMONARY OEDEMA [None]
  - PULMONARY EMBOLISM [None]
